FAERS Safety Report 8205085-2 (Version None)
Quarter: 2012Q1

REPORT INFORMATION
  Report Type: 
  Country: None (occurrence: None)
  Receive Date: 20120309
  Receipt Date: 20120223
  Transmission Date: 20120608
  Serious: Yes (Other)
  Sender: FDA-Public Use
  Company Number: 1202-081

PATIENT
  Age: 73 Year
  Sex: Male
  Weight: 74.3899 kg

DRUGS (5)
  1. EYE VITAMINS (MULTIVITAMINS) [Concomitant]
  2. HYDROCHLOROTHIAZIDE [Concomitant]
  3. EYLEA [Suspect]
     Indication: CHOROIDAL NEOVASCULARISATION
     Dosage: INTRAVITREAL
     Dates: start: 20120126
  4. FELODIPINE [Concomitant]
  5. TIMOLOL MALEATE [Concomitant]

REACTIONS (5)
  - EYE INFLAMMATION [None]
  - CORNEAL DISORDER [None]
  - VISUAL ACUITY REDUCED [None]
  - CONJUNCTIVAL OEDEMA [None]
  - CONJUNCTIVAL HYPERAEMIA [None]
